FAERS Safety Report 14587058 (Version 1)
Quarter: 2018Q1

REPORT INFORMATION
  Report Type: Report from Study
  Country: US (occurrence: US)
  Receive Date: 20180301
  Receipt Date: 20180301
  Transmission Date: 20180509
  Serious: No
  Sender: FDA-Public Use
  Company Number: US-TEVA-2018-US-855222

PATIENT
  Sex: Female

DRUGS (2)
  1. AYGESTIN [Suspect]
     Active Substance: NORETHINDRONE ACETATE
     Route: 048
  2. LUPRON DEPOT [Suspect]
     Active Substance: LEUPROLIDE ACETATE
     Indication: ENDOMETRIOSIS
     Dates: start: 2009

REACTIONS (4)
  - Exposure during pregnancy [Unknown]
  - Pelvic pain [Unknown]
  - Hypertension [Recovered/Resolved]
  - Normal newborn [Unknown]

NARRATIVE: CASE EVENT DATE: 2014
